FAERS Safety Report 6975802-8 (Version None)
Quarter: 2010Q3

REPORT INFORMATION
  Report Type: 
  Country: None (occurrence: None)
  Receive Date: 20100910
  Receipt Date: 20090409
  Transmission Date: 20110219
  Serious: No
  Sender: FDA-Public Use
  Company Number: US-WYE-H08916609

PATIENT
  Sex: Female
  Weight: 74.91 kg

DRUGS (19)
  1. PRISTIQ [Suspect]
     Indication: DEPRESSION
     Route: 048
     Dates: start: 20090301
  2. COUMADIN [Concomitant]
  3. DIGOXIN [Concomitant]
  4. VYTORIN [Concomitant]
  5. IMIPRAMINE [Concomitant]
  6. MAGNESIUM OXIDE [Concomitant]
  7. ALDACTONE [Concomitant]
  8. COREG [Concomitant]
  9. ACETYLSALICYLIC ACID [Concomitant]
  10. OXYCONTIN [Concomitant]
  11. ATACAND [Concomitant]
  12. ALLEGRA [Concomitant]
  13. PLAVIX [Concomitant]
  14. PLETAL [Concomitant]
  15. CALCIUM PANTOTHENATE/NICOTINAMIDE/PYRIDOXINE HYDROCHLORIDE/RIBOFLAVIN/ [Concomitant]
  16. MICRO-K [Concomitant]
  17. NEXIUM [Concomitant]
  18. NEURONTIN [Concomitant]
  19. LASIX [Concomitant]

REACTIONS (1)
  - HYPERHIDROSIS [None]
